FAERS Safety Report 8509787-X (Version None)
Quarter: 2012Q3

REPORT INFORMATION
  Report Type: 
  Country: None (occurrence: None)
  Receive Date: 20120713
  Receipt Date: 20120706
  Transmission Date: 20120928
  Serious: Yes (Hospitalization)
  Sender: FDA-Public Use
  Company Number: US-ABBOTT-12P-163-0947682-00

PATIENT
  Age: 72 Year
  Sex: Female

DRUGS (16)
  1. HYDROCHLOROTHIAZIDE [Concomitant]
     Indication: HYPERTENSION
  2. SERTALINE [Concomitant]
     Indication: DEPRESSION
     Dosage: 1 AND 1/2 TAB ONCE DAILY
  3. VITAMIN D [Concomitant]
     Indication: PRODUCT USED FOR UNKNOWN INDICATION
     Dosage: 50000 UNIT WEEKLY
  4. SPIRIVA [Concomitant]
     Indication: CHRONIC OBSTRUCTIVE PULMONARY DISEASE
  5. HUMIRA [Suspect]
     Dates: end: 20110701
  6. HUMIRA [Suspect]
     Dates: start: 20120608
  7. VARIOUS CREAMS [Concomitant]
     Indication: PSORIASIS
  8. DICLOFENAC [Concomitant]
     Indication: ARTHRITIS
  9. COMBIVENT [Concomitant]
     Indication: CHRONIC OBSTRUCTIVE PULMONARY DISEASE
     Route: 055
  10. HYDROCHLOROTHIAZIDE [Concomitant]
     Indication: OEDEMA PERIPHERAL
  11. TRIAMCINOLONE [Concomitant]
     Indication: PSORIASIS
     Dosage: DAILY
  12. HUMIRA [Suspect]
     Indication: PSORIASIS
     Dates: start: 20100101
  13. HYDROCHLOROTHIAZIDE [Concomitant]
     Indication: JOINT SWELLING
  14. ACETAMINOPHEN [Concomitant]
     Indication: PRODUCT USED FOR UNKNOWN INDICATION
  15. METRONIDAZOLE [Concomitant]
     Indication: PRODUCT USED FOR UNKNOWN INDICATION
     Dates: end: 20120507
  16. HYDROCORTISONE [Concomitant]
     Indication: VULVOVAGINAL PRURITUS
     Route: 061

REACTIONS (15)
  - CHRONIC OBSTRUCTIVE PULMONARY DISEASE [None]
  - IMMUNE SYSTEM DISORDER [None]
  - DEPRESSION [None]
  - PNEUMONIA [None]
  - RESPIRATORY DISORDER [None]
  - MUSCULOSKELETAL PAIN [None]
  - PSORIASIS [None]
  - VITAMIN D DECREASED [None]
  - FEAR [None]
  - HERPES ZOSTER [None]
  - DYSPNOEA [None]
  - DEHYDRATION [None]
  - SLEEP DISORDER [None]
  - PAIN IN EXTREMITY [None]
  - FEELING ABNORMAL [None]
